FAERS Safety Report 14816582 (Version 2)
Quarter: 2018Q2

REPORT INFORMATION
  Report Type: Spontaneous
  Country: US (occurrence: US)
  Receive Date: 20180426
  Receipt Date: 20180508
  Transmission Date: 20180711
  Serious: Yes (Death)
  Sender: FDA-Public Use
  Company Number: US-PFIZER INC-2018166597

PATIENT

DRUGS (1)
  1. EPSOM SALT [Suspect]
     Active Substance: MAGNESIUM SULFATE
     Indication: BREATH ODOUR
     Dosage: UNK

REACTIONS (1)
  - Hypermagnesaemia [Fatal]
